FAERS Safety Report 8850007 (Version 1)
Quarter: 2012Q4

REPORT INFORMATION
  Report Type: 
  Country: US (occurrence: US)
  Receive Date: 20121019
  Receipt Date: 20121019
  Transmission Date: 20130627
  Serious: No
  Sender: FDA-Public Use
  Company Number: US-B.I. PHARMACEUTICALS,INC./RIDGEFIELD-2012-BP-25901BP

PATIENT
  Sex: Female
  Weight: 91 kg

DRUGS (4)
  1. PRADAXA [Suspect]
     Indication: ATRIAL FIBRILLATION
     Dosage: 300 mg
     Route: 048
     Dates: start: 201203
  2. LISINOPRIL [Concomitant]
     Indication: HYPERTENSION
     Dosage: 20 mg
     Route: 048
     Dates: start: 2006
  3. TOPROL XL [Concomitant]
     Indication: HEART RATE ABNORMAL
     Dosage: 100 mg
     Route: 048
  4. CORTISONE [Concomitant]
     Indication: KNEE DEFORMITY

REACTIONS (2)
  - Arthralgia [Not Recovered/Not Resolved]
  - Headache [Unknown]
